FAERS Safety Report 8134373-3 (Version None)
Quarter: 2012Q1

REPORT INFORMATION
  Report Type: 
  Country: None (occurrence: None)
  Receive Date: 20120209
  Receipt Date: 20120131
  Transmission Date: 20120608
  Serious: Yes (Other)
  Sender: FDA-Public Use
  Company Number: 1000026862

PATIENT
  Age: 64 Year
  Sex: Female
  Weight: 65.77 kg

DRUGS (3)
  1. ELAVIL (AMITRIPTYLINE) ELAVIL (AMITRIPTYLINE)  (AMITRIPTYLINE) [Concomitant]
  2. VIIBRYD [Suspect]
     Indication: DEPRESSION
     Dosage: 10 MG (10 MG,1 IN 1 D), ORAL
     Route: 048
     Dates: start: 20111222, end: 20111224
  3. DEPAKOTE [Concomitant]

REACTIONS (4)
  - SUICIDAL IDEATION [None]
  - CONDITION AGGRAVATED [None]
  - DEPRESSION [None]
  - AGITATION [None]
